FAERS Safety Report 20491703 (Version 2)
Quarter: 2022Q4

REPORT INFORMATION
  Report Type: Spontaneous
  Country: US (occurrence: US)
  Receive Date: 20220218
  Receipt Date: 20221020
  Transmission Date: 20230112
  Serious: No
  Sender: FDA-Public Use
  Company Number: US-PFIZER INC-202200123849

PATIENT
  Age: 85 Year
  Sex: Female
  Weight: 68.04 kg

DRUGS (2)
  1. PREMARIN [Suspect]
     Active Substance: ESTROGENS, CONJUGATED
     Indication: Radical hysterectomy
     Dosage: 1 DF, 1X/DAY (0.3)
  2. PREMARIN [Suspect]
     Active Substance: ESTROGENS, CONJUGATED
     Indication: Bone density abnormal

REACTIONS (1)
  - Illness [Unknown]
